FAERS Safety Report 8310110-4 (Version None)
Quarter: 2012Q2

REPORT INFORMATION
  Report Type: 
  Country: None (occurrence: None)
  Receive Date: 20120425
  Receipt Date: 20120420
  Transmission Date: 20120825
  Serious: No
  Sender: FDA-Public Use
  Company Number: US-BAYER-2012-039481

PATIENT
  Age: 33 Year
  Sex: Female

DRUGS (3)
  1. VENLAFAXINE [Concomitant]
     Indication: DEPRESSION
     Dosage: UNK
     Dates: start: 20110101
  2. BETASERON [Suspect]
     Indication: MULTIPLE SCLEROSIS
     Dosage: 0.3 MG, QOD
     Route: 058
     Dates: start: 20081201
  3. VENLAFAXINE [Concomitant]
     Indication: APATHY

REACTIONS (2)
  - APATHY [None]
  - DEPRESSION [None]
